FAERS Safety Report 17277628 (Version 1)
Quarter: 2020Q1

REPORT INFORMATION
  Report Type: Spontaneous
  Country: US (occurrence: US)
  Receive Date: 20191227
  Receipt Date: 20191227
  Transmission Date: 20200409
  Serious: Yes (Hospitalization)
  Sender: FDA-Public Use
  Company Number: None

PATIENT
  Sex: Female

DRUGS (4)
  1. TACROLIMUS 1MG [Suspect]
     Active Substance: TACROLIMUS
     Indication: STEM CELL TRANSPLANT
     Route: 048
     Dates: start: 201904
  2. PREVYMIS [Suspect]
     Active Substance: LETERMOVIR
     Indication: STEM CELL TRANSPLANT
     Route: 048
     Dates: start: 201911
  3. HYDROXYUREA. [Concomitant]
     Active Substance: HYDROXYUREA
  4. ANAGRELIDE. [Concomitant]
     Active Substance: ANAGRELIDE HYDROCHLORIDE

REACTIONS (1)
  - Hospitalisation [None]
